FAERS Safety Report 15712954 (Version 2)
Quarter: 2019Q1

REPORT INFORMATION
  Report Type: Spontaneous
  Country: US (occurrence: US)
  Receive Date: 20181212
  Receipt Date: 20190303
  Transmission Date: 20190417
  Serious: Yes (Death, Other)
  Sender: FDA-Public Use
  Company Number: PHEH2018US052351

PATIENT
  Age: 46 Year
  Sex: Male

DRUGS (1)
  1. TASIGNA [Suspect]
     Active Substance: NILOTINIB
     Indication: CHRONIC MYELOID LEUKAEMIA
     Dosage: 2 DF, BID
     Route: 048
     Dates: start: 20151219

REACTIONS (26)
  - Constipation [Unknown]
  - Arthralgia [Unknown]
  - Back pain [Unknown]
  - Vertebral artery stenosis [Unknown]
  - Hypertension [Unknown]
  - Emphysema [Unknown]
  - Bone pain [Unknown]
  - Epididymitis [Unknown]
  - Candida infection [Unknown]
  - Abdominal pain [Unknown]
  - Hyponatraemia [Unknown]
  - Weight decreased [Unknown]
  - Dizziness [Unknown]
  - Pyrexia [Unknown]
  - Death [Fatal]
  - Cerebrovascular accident [Unknown]
  - Splenomegaly [Unknown]
  - Hypotension [Unknown]
  - Oedema peripheral [Unknown]
  - Thrombocytopenia [Unknown]
  - Pancytopenia [Unknown]
  - Chronic obstructive pulmonary disease [Unknown]
  - Neutropenia [Unknown]
  - Asthenia [Unknown]
  - Tachycardia [Unknown]
  - Depression [Unknown]

NARRATIVE: CASE EVENT DATE: 201603
